FAERS Safety Report 25922405 (Version 2)
Quarter: 2025Q4

REPORT INFORMATION
  Report Type: Spontaneous
  Country: US (occurrence: US)
  Receive Date: 20251015
  Receipt Date: 20251104
  Transmission Date: 20260118
  Serious: No
  Sender: BAUSCH AND LOMB
  Company Number: US-BAUSCHBL-2025BNL029824

PATIENT
  Age: 75 Year
  Sex: Female
  Weight: 78.01 kg

DRUGS (2)
  1. TOBRAMYCIN AND DEXAMETHASONE [Suspect]
     Active Substance: DEXAMETHASONE\TOBRAMYCIN
     Indication: Eye infection
     Dosage: INSTILL ONE DROP IN EACH EYE FOUR TIMES A DAY FOR THE FIRST WEEK AND ONE DROP IN EACH EYE TWICE A DA
     Route: 047
     Dates: start: 20251004
  2. TOBRAMYCIN AND DEXAMETHASONE [Suspect]
     Active Substance: DEXAMETHASONE\TOBRAMYCIN
     Dosage: INSTILL ONE DROP IN EACH EYE FOUR TIMES A DAY FOR THE FIRST WEEK AND ONE DROP IN EACH EYE TWICE A DA
     Route: 047
     Dates: start: 20250110

REACTIONS (4)
  - Drug ineffective [Unknown]
  - Liquid product physical issue [Unknown]
  - Product quality issue [Unknown]
  - Product colour issue [Unknown]

NARRATIVE: CASE EVENT DATE: 20251006
